FAERS Safety Report 10660630 (Version 1)
Quarter: 2014Q4

REPORT INFORMATION
  Report Type: Spontaneous
  Country: CA (occurrence: CA)
  Receive Date: 20141217
  Receipt Date: 20141217
  Transmission Date: 20150529
  Serious: Yes (Life-Threatening)
  Sender: FDA-Public Use
  Company Number: CA-SPECTRUM PHARMACEUTICALS, INC.-14-F-CA-00432

PATIENT
  Age: 49 Year
  Sex: Female

DRUGS (2)
  1. FLUOROURACIL. [Suspect]
     Active Substance: FLUOROURACIL
     Indication: BLADDER TRANSITIONAL CELL CARCINOMA
     Dosage: 1000 MG/M2 X 4 DAYS
  2. CISPLATIN. [Suspect]
     Active Substance: CISPLATIN
     Indication: BLADDER TRANSITIONAL CELL CARCINOMA
     Dosage: 75 MG/M2, UNK

REACTIONS (6)
  - Respiratory failure [None]
  - Cardiogenic shock [Recovering/Resolving]
  - Acute kidney injury [None]
  - Multi-organ disorder [None]
  - Arteriospasm coronary [None]
  - Cardiomyopathy acute [None]
